FAERS Safety Report 5964866-6 (Version None)
Quarter: 2008Q4

REPORT INFORMATION
  Report Type: 
  Country: None (occurrence: None)
  Receive Date: 20081121
  Receipt Date: 20081111
  Transmission Date: 20090506
  Serious: Yes (Hospitalization)
  Sender: FDA-Public Use
  Company Number: WAES 0807USA04472

PATIENT
  Age: 81 Year
  Sex: Male
  Weight: 65.7716 kg

DRUGS (35)
  1. CAP VORINOSTAT UNK [Suspect]
     Indication: ACUTE MYELOID LEUKAEMIA
     Dosage: SEE IMAGE
     Route: 048
     Dates: start: 20080303, end: 20080316
  2. CAP VORINOSTAT UNK [Suspect]
     Indication: ACUTE MYELOID LEUKAEMIA
     Dosage: SEE IMAGE
     Route: 048
     Dates: start: 20080331, end: 20080413
  3. CAP VORINOSTAT UNK [Suspect]
     Indication: ACUTE MYELOID LEUKAEMIA
     Dosage: SEE IMAGE
     Route: 048
     Dates: start: 20080428, end: 20080511
  4. CAP VORINOSTAT UNK [Suspect]
     Indication: ACUTE MYELOID LEUKAEMIA
     Dosage: SEE IMAGE
     Route: 048
     Dates: start: 20080605, end: 20080618
  5. CAP VORINOSTAT UNK [Suspect]
     Indication: ACUTE MYELOID LEUKAEMIA
     Dosage: SEE IMAGE
     Route: 048
     Dates: start: 20080717, end: 20080730
  6. DECITABINE, 38.2 MG, 38.4 MG, 37.4 MG [Suspect]
     Indication: ACUTE MYELOID LEUKAEMIA
     Dosage: SEE IMAGE
     Route: 042
     Dates: start: 20080303, end: 20080307
  7. DECITABINE, 38.2 MG, 38.4 MG, 37.4 MG [Suspect]
     Indication: ACUTE MYELOID LEUKAEMIA
     Dosage: SEE IMAGE
     Route: 042
     Dates: start: 20080331, end: 20080404
  8. DECITABINE, 38.2 MG, 38.4 MG, 37.4 MG [Suspect]
     Indication: ACUTE MYELOID LEUKAEMIA
     Dosage: SEE IMAGE
     Route: 042
     Dates: start: 20080428, end: 20080502
  9. DECITABINE, 38.2 MG, 38.4 MG, 37.4 MG [Suspect]
     Indication: ACUTE MYELOID LEUKAEMIA
     Dosage: SEE IMAGE
     Route: 042
     Dates: start: 20080605, end: 20080609
  10. DECITABINE, 38.2 MG, 38.4 MG, 37.4 MG [Suspect]
     Indication: ACUTE MYELOID LEUKAEMIA
     Dosage: SEE IMAGE
     Route: 042
     Dates: start: 20080717, end: 20080721
  11. ASACOL [Concomitant]
  12. CELEXA [Concomitant]
  13. COMPAZINE [Concomitant]
  14. FLOMAX (MORNIFLUMATE) [Concomitant]
  15. IMODIUM [Concomitant]
  16. KEPPRA [Concomitant]
  17. MEGACE [Suspect]
  18. PROTONIX [Concomitant]
  19. TYLENOL (CAPLET) [Concomitant]
  20. UNISON (DIPHENYDRAMINE HYDROCHLO) [Concomitant]
  21. ZOCOR [Concomitant]
  22. ACYCLOVIR [Concomitant]
  23. CLOTRIMAZOLE [Concomitant]
  24. CYANOCOBALAMIN [Concomitant]
  25. DIPHENYDRAMINE HYDROCHLORIDE [Concomitant]
  26. FUROSEMIDE [Concomitant]
  27. LORAZEPAM [Concomitant]
  28. MAGNESIUM SULFATE [Concomitant]
  29. METOPROLOL TARTRATE [Concomitant]
  30. ONDANSETRON [Concomitant]
  31. OXYCODONE HCL [Concomitant]
  32. PHYTONADIONE [Concomitant]
  33. POTASSIUM CHLORIDE [Concomitant]
  34. SENNOSIDES [Concomitant]
  35. VITAMINS (UNSPECIFIED) [Concomitant]

REACTIONS (20)
  - ATRIAL TACHYCARDIA [None]
  - CAROTID ARTERY STENOSIS [None]
  - CEREBRAL VENTRICLE DILATATION [None]
  - CHEST PAIN [None]
  - DEHYDRATION [None]
  - DISEASE PROGRESSION [None]
  - DIVERTICULUM [None]
  - DRUG WITHDRAWAL SYNDROME [None]
  - DYSPHAGIA [None]
  - FALL [None]
  - MYOCARDIAL INFARCTION [None]
  - OESOPHAGEAL CANDIDIASIS [None]
  - PNEUMONIA [None]
  - PULMONARY OEDEMA [None]
  - SIALOADENITIS [None]
  - SOMNOLENCE [None]
  - SUBDURAL HAEMATOMA [None]
  - SUPRAVENTRICULAR EXTRASYSTOLES [None]
  - TACHYCARDIA [None]
  - URINARY RETENTION [None]
